FAERS Safety Report 8857088 (Version 1)
Quarter: 2012Q4

REPORT INFORMATION
  Report Type: Spontaneous
  Country: US (occurrence: None)
  Receive Date: 20121022
  Receipt Date: 20121022
  Transmission Date: 20130627
  Serious: Yes (Other)
  Sender: FDA-Public Use
  Company Number: None

PATIENT
  Age: 55 Year
  Sex: Female
  Weight: 113.4 kg

DRUGS (2)
  1. PRILOSEC OTC [Suspect]
     Indication: GERD
     Dosage: 2 tablets, Daily, po
     Route: 048
     Dates: start: 20121010, end: 20121017
  2. PRILOSEC OTC [Suspect]
     Indication: HIATAL HERNIA
     Dosage: 2 tablets, Daily, po
     Route: 048
     Dates: start: 20121010, end: 20121017

REACTIONS (4)
  - Gastrooesophageal reflux disease [None]
  - Vomiting [None]
  - Hiatus hernia [None]
  - Condition aggravated [None]
